FAERS Safety Report 24753137 (Version 1)
Quarter: 2024Q4

REPORT INFORMATION
  Report Type: Spontaneous
  Country: IR (occurrence: IR)
  Receive Date: 20241219
  Receipt Date: 20241219
  Transmission Date: 20250114
  Serious: Yes (Other)
  Sender: RANBAXY
  Company Number: IR-SUN PHARMACEUTICAL INDUSTRIES LTD-2024R1-485137

PATIENT
  Age: 19 Year
  Sex: Female

DRUGS (3)
  1. DIPHENHYDRAMINE [Suspect]
     Active Substance: DIPHENHYDRAMINE
     Indication: Thalassaemia beta
     Dosage: 25 MILLIGRAM
     Route: 065
  2. HYDROCORTISONE [Suspect]
     Active Substance: HYDROCORTISONE
     Indication: Thalassaemia beta
     Dosage: 100 MILLIGRAM
     Route: 065
  3. CHLORPHENIRAMINE [Concomitant]
     Active Substance: CHLORPHENIRAMINE
     Indication: Thalassaemia beta
     Dosage: 5 MILLIGRAM
     Route: 065

REACTIONS (1)
  - Condition aggravated [Unknown]
